FAERS Safety Report 4582984-4 (Version None)
Quarter: 2005Q1

REPORT INFORMATION
  Report Type: 
  Country: None (occurrence: None)
  Receive Date: 20050127
  Receipt Date: 20040921
  Transmission Date: 20050727
  Serious: No
  Sender: FDA-Public Use
  Company Number: USA040978877

PATIENT
  Age: 9 Year
  Sex: Male
  Weight: 37 kg

DRUGS (2)
  1. STRATTERA [Suspect]
     Dates: start: 20030101, end: 20040801
  2. CONCERTA [Concomitant]

REACTIONS (5)
  - DECREASED APPETITE [None]
  - INCREASED APPETITE [None]
  - PSYCHOMOTOR HYPERACTIVITY [None]
  - WEIGHT DECREASED [None]
  - WEIGHT INCREASED [None]
